FAERS Safety Report 6982643-4 (Version None)
Quarter: 2010Q3

REPORT INFORMATION
  Report Type: 
  Country: None (occurrence: None)
  Receive Date: 20100909
  Receipt Date: 20100831
  Transmission Date: 20110219
  Serious: Yes (Other)
  Sender: FDA-Public Use
  Company Number: 2QLT2010US801011

PATIENT
  Sex: Female

DRUGS (1)
  1. VISUDYNE [Suspect]

REACTIONS (5)
  - DERMATITIS [None]
  - HYPOAESTHESIA [None]
  - INFUSION SITE EXTRAVASATION [None]
  - PAIN [None]
  - SKIN INJURY [None]
